FAERS Safety Report 9781208 (Version 1)
Quarter: 2013Q4

REPORT INFORMATION
  Report Type: Spontaneous
  Country: US (occurrence: None)
  Receive Date: 20131223
  Receipt Date: 20131223
  Transmission Date: 20140711
  Serious: Yes (Other)
  Sender: FDA-Public Use
  Company Number: None

PATIENT
  Age: 34 Year
  Sex: Female
  Weight: 56.7 kg

DRUGS (1)
  1. MIRENA IUD [Suspect]
     Dates: start: 20130614, end: 20131216

REACTIONS (2)
  - Fungal infection [None]
  - Bacterial infection [None]
